FAERS Safety Report 10028515 (Version 1)
Quarter: 2014Q1

REPORT INFORMATION
  Report Type: Spontaneous
  Country: US (occurrence: None)
  Receive Date: 20140310
  Receipt Date: 20140310
  Transmission Date: 20141002
  Serious: Yes (Other)
  Sender: FDA-Public Use
  Company Number: 2014P1001480

PATIENT
  Age: 20 Year
  Sex: Female

DRUGS (12)
  1. FENTANYL MATRIX TRANSDERMAL SYSTEM [Suspect]
     Indication: DENTAL OPERATION
     Route: 042
     Dates: start: 20140214, end: 20140214
  2. FENTANYL MATRIX TRANSDERMAL SYSTEM [Suspect]
     Indication: SEDATION
     Route: 042
     Dates: start: 20140214, end: 20140214
  3. MIDAZOLAM [Suspect]
     Indication: DENTAL OPERATION
     Route: 042
     Dates: start: 20140214, end: 20140214
  4. MIDAZOLAM [Suspect]
     Indication: SEDATION
     Route: 042
     Dates: start: 20140214, end: 20140214
  5. KETAMINE [Suspect]
     Indication: DENTAL OPERATION
     Route: 042
     Dates: start: 20140214, end: 20140214
  6. KETAMINE [Suspect]
     Indication: SEDATION
     Route: 042
     Dates: start: 20140214, end: 20140214
  7. PENICILLIN [Concomitant]
  8. MEDROL [Concomitant]
  9. PROPOFOL [Concomitant]
  10. DECADRON [Concomitant]
  11. 2% LIDOCAINE WITH 1:100,000 EPINEPHRINE [Concomitant]
  12. 0.5% MARCAINE WITH 1:200,000 EPINEPHRINE [Concomitant]

REACTIONS (4)
  - Apnoeic attack [None]
  - Sudden onset of sleep [None]
  - Tachycardia [None]
  - Secretion discharge [None]
